FAERS Safety Report 23267528 (Version 1)
Quarter: 2023Q4

REPORT INFORMATION
  Report Type: Spontaneous
  Country: US (occurrence: None)
  Receive Date: 20231205
  Receipt Date: 20231205
  Transmission Date: 20240110
  Serious: Yes (Other)
  Sender: FDA-Public Use
  Company Number: None

PATIENT
  Age: 55 Year
  Sex: Female
  Weight: 78.3 kg

DRUGS (6)
  1. PHENTERMINE [Suspect]
     Active Substance: PHENTERMINE
     Indication: Weight decreased
  2. ARMOUR THYROID [Concomitant]
     Active Substance: THYROID, PORCINE
  3. SEROQUEL [Concomitant]
     Active Substance: QUETIAPINE FUMARATE
  4. PEPCID [Concomitant]
     Active Substance: FAMOTIDINE
  5. ZYRTEC [Concomitant]
     Active Substance: CETIRIZINE HYDROCHLORIDE
  6. BENADRYL [Concomitant]
     Active Substance: DIPHENHYDRAMINE HYDROCHLORIDE

REACTIONS (8)
  - Urticaria [None]
  - Depression [None]
  - Feeling of despair [None]
  - Drug ineffective [None]
  - Autoimmune thyroiditis [None]
  - Condition aggravated [None]
  - Quality of life decreased [None]
  - Product complaint [None]

NARRATIVE: CASE EVENT DATE: 20231205
